FAERS Safety Report 8792639 (Version 1)
Quarter: 2012Q4

REPORT INFORMATION
  Report Type: 
  Country: US (occurrence: US)
  Receive Date: 20120918
  Receipt Date: 20120918
  Transmission Date: 20130627
  Serious: Yes (Hospitalization)
  Sender: FDA-Public Use
  Company Number: US-GLAXOSMITHKLINE-A0775103A

PATIENT
  Age: 50 Year
  Sex: Female
  Weight: 116.4 kg

DRUGS (1)
  1. AVANDIA [Suspect]
     Indication: DIABETES MELLITUS
     Dosage: 4MG Twice per day
     Route: 048
     Dates: start: 2004, end: 200705

REACTIONS (6)
  - Atrial fibrillation [Not Recovered/Not Resolved]
  - Cardiac failure congestive [Unknown]
  - Insomnia [Unknown]
  - Dyspnoea [Unknown]
  - Weight increased [Unknown]
  - Cardiac disorder [Unknown]
